FAERS Safety Report 26155863 (Version 1)
Quarter: 2025Q4

REPORT INFORMATION
  Report Type: Spontaneous
  Country: US (occurrence: US)
  Receive Date: 20251215
  Receipt Date: 20251215
  Transmission Date: 20260118
  Serious: No
  Sender: ALKEM
  Company Number: US-ALKEM LABORATORIES LIMITED-US-ALKEM-2025-12272

PATIENT

DRUGS (1)
  1. TACROLIMUS [Suspect]
     Active Substance: TACROLIMUS
     Indication: Oral lichen planus
     Dosage: 1 MILLIGRAM, BID (LP-10 LIPOSOMAL TACROLIMUS) (ORAL RINSE)
     Route: 048

REACTIONS (1)
  - Oral fungal infection [Recovered/Resolved]
